FAERS Safety Report 4565603-2 (Version None)
Quarter: 2005Q1

REPORT INFORMATION
  Report Type: 
  Country: None (occurrence: None)
  Receive Date: 20050126
  Receipt Date: 20050107
  Transmission Date: 20050727
  Serious: Yes (Other)
  Sender: FDA-Public Use
  Company Number: USA050188030

PATIENT
  Sex: Female

DRUGS (1)
  1. CYMBALTA [Suspect]
     Dosage: 20 MG
     Dates: start: 20041201, end: 20041201

REACTIONS (4)
  - BRAIN SCAN ABNORMAL [None]
  - EXCORIATION [None]
  - HEAD INJURY [None]
  - LOSS OF CONSCIOUSNESS [None]
